FAERS Safety Report 9855306 (Version 3)
Quarter: 2014Q1

REPORT INFORMATION
  Report Type: Spontaneous
  Country: US (occurrence: US)
  Receive Date: 20140130
  Receipt Date: 20140312
  Transmission Date: 20141002
  Serious: Yes (Other)
  Sender: FDA-Public Use
  Company Number: US-SA-2014SA002513

PATIENT
  Age: 75 Year
  Sex: Male
  Weight: 75.29 kg

DRUGS (5)
  1. ALLEGRA [Suspect]
     Indication: HYPERSENSITIVITY
     Route: 048
     Dates: start: 201401
  2. ALLEGRA [Suspect]
     Indication: ASTHMA
     Route: 048
     Dates: start: 201401
  3. ALLEGRA [Concomitant]
     Indication: HYPERSENSITIVITY
     Route: 065
     Dates: start: 20140115
  4. ALLEGRA [Concomitant]
     Indication: HYPERSENSITIVITY
     Route: 065
     Dates: start: 1985, end: 20140115
  5. ALL OTHER THERAPEUTIC PRODUCTS [Concomitant]
     Dosage: (AT 05:00, 13:00, AND 21:00)
     Route: 065
     Dates: start: 20140202

REACTIONS (12)
  - Chronic obstructive pulmonary disease [Not Recovered/Not Resolved]
  - Spinocerebellar ataxia [Not Recovered/Not Resolved]
  - Glaucoma [Not Recovered/Not Resolved]
  - Reflux laryngitis [Not Recovered/Not Resolved]
  - Hypertension [Not Recovered/Not Resolved]
  - Benign prostatic hyperplasia [Not Recovered/Not Resolved]
  - Hypersensitivity [Not Recovered/Not Resolved]
  - Asthma [Not Recovered/Not Resolved]
  - Rhinitis [Not Recovered/Not Resolved]
  - Nasal dryness [Unknown]
  - Therapeutic response decreased [Unknown]
  - Drug administration error [Unknown]
